FAERS Safety Report 8360666-0 (Version None)
Quarter: 2012Q2

REPORT INFORMATION
  Report Type: 
  Country: None (occurrence: None)
  Receive Date: 20120514
  Receipt Date: 20120514
  Transmission Date: 20120825
  Serious: No
  Sender: FDA-Public Use
  Company Number: None

PATIENT
  Sex: Female

DRUGS (1)
  1. NORDITROPIN FLEXPRO [Suspect]
     Indication: GONADAL DYSGENESIS
     Dosage: 0.8 MG DAILY SQ
     Route: 058
     Dates: start: 20110311

REACTIONS (3)
  - INSOMNIA [None]
  - BACK PAIN [None]
  - PSYCHOMOTOR HYPERACTIVITY [None]
